FAERS Safety Report 25185872 (Version 2)
Quarter: 2025Q2

REPORT INFORMATION
  Report Type: Report from Study
  Country: US (occurrence: US)
  Receive Date: 20250410
  Receipt Date: 20250417
  Transmission Date: 20250717
  Serious: Yes (Death, Other)
  Sender: BAYER
  Company Number: US-BAYER-2025A045072

PATIENT
  Age: 56 Year
  Sex: Male

DRUGS (14)
  1. STIVARGA [Suspect]
     Active Substance: REGORAFENIB MONOHYDRATE
     Indication: Colorectal cancer metastatic
     Dosage: 160 MG, QD  FOR 3 WEEKS ON, 1 OFF
     Route: 048
     Dates: start: 20250201
  2. STIVARGA [Suspect]
     Active Substance: REGORAFENIB MONOHYDRATE
     Indication: Colon cancer
     Dosage: 40 MG, BID
     Dates: start: 20250401, end: 20250401
  3. STIVARGA [Suspect]
     Active Substance: REGORAFENIB MONOHYDRATE
     Indication: Colorectal cancer metastatic
     Dosage: 120 MG, QD, FOR 21 DAYS, THEN 7 DAYS OFF
     Route: 048
  4. ACETAMINOPHEN [Concomitant]
     Active Substance: ACETAMINOPHEN
  5. BIOFREEZE [Concomitant]
     Active Substance: MENTHOL
  6. CYCLOBENZAPRINE [Concomitant]
     Active Substance: CYCLOBENZAPRINE
  7. DOCUSATE [Concomitant]
     Active Substance: DOCUSATE
  8. ELIQUIS [Concomitant]
     Active Substance: APIXABAN
  9. LORATADINE [Concomitant]
     Active Substance: LORATADINE
  10. METOPROLOL SUCCINATE [Concomitant]
     Active Substance: METOPROLOL SUCCINATE
  11. OMEPRAZOLE [Concomitant]
     Active Substance: OMEPRAZOLE
  12. ONDANSETRON [Concomitant]
     Active Substance: ONDANSETRON
  13. VITAMINS [Concomitant]
     Active Substance: VITAMINS
  14. Turkey tail [Concomitant]

REACTIONS (11)
  - Death [Fatal]
  - Dehydration [None]
  - Malaise [Not Recovered/Not Resolved]
  - Fluid intake reduced [Not Recovered/Not Resolved]
  - Weight decreased [Not Recovered/Not Resolved]
  - Asthenia [Not Recovered/Not Resolved]
  - Dry mouth [Not Recovered/Not Resolved]
  - Decreased appetite [Not Recovered/Not Resolved]
  - Incorrect dose administered [None]
  - Product dose omission issue [None]
  - Product availability issue [None]

NARRATIVE: CASE EVENT DATE: 20250411
